FAERS Safety Report 5520850-8 (Version None)
Quarter: 2007Q4

REPORT INFORMATION
  Report Type: 
  Country: None (occurrence: None)
  Receive Date: 20071119
  Receipt Date: 20071115
  Transmission Date: 20080405
  Serious: No
  Sender: FDA-Public Use
  Company Number: B0477400A

PATIENT
  Age: 68 Year
  Sex: Female
  Weight: 43 kg

DRUGS (2)
  1. ZEFIX [Suspect]
     Indication: HEPATITIS B
     Dosage: 100MG PER DAY
     Route: 048
     Dates: start: 20050322, end: 20050415
  2. HEPSERA [Concomitant]
     Indication: HEPATITIS B
     Dosage: 10MG PER DAY
     Route: 048
     Dates: start: 20050704

REACTIONS (2)
  - DIZZINESS [None]
  - VOMITING [None]
